FAERS Safety Report 14765515 (Version 14)
Quarter: 2019Q1

REPORT INFORMATION
  Report Type: Spontaneous
  Country: FR (occurrence: FR)
  Receive Date: 20180416
  Receipt Date: 20190318
  Transmission Date: 20190417
  Serious: Yes (Hospitalization, Other)
  Sender: FDA-Public Use
  Company Number: FR-MYLANLABS-2018M1024333

PATIENT
  Age: 62 Year
  Sex: Female
  Weight: 81 kg

DRUGS (47)
  1. ATORVASTATIN MYLAN [Suspect]
     Active Substance: ATORVASTATIN
     Dosage: 20 MG, QD
     Route: 065
     Dates: start: 20150922
  2. ACETYLLEUCINE [Suspect]
     Active Substance: ACETYLLEUCINE
     Indication: DIZZINESS
     Dosage: 2 DOSAGE FORM, QD
     Route: 065
  3. VOGALENE [Concomitant]
     Active Substance: METOPIMAZINE
     Indication: PRODUCT USED FOR UNKNOWN INDICATION
     Dosage: UNK
     Dates: start: 20160331
  4. ALTIZIDE/SPIRONOLACTONE [Suspect]
     Active Substance: ALTHIAZIDE\SPIRONOLACTONE
     Dosage: 1 DF, QD
     Dates: start: 20160321
  5. ADVAGRAF [Concomitant]
     Active Substance: TACROLIMUS
     Indication: IMMUNOSUPPRESSION
     Dosage: 6 MG, AT 08:00
     Route: 048
  6. OMEPRAZOLE. [Concomitant]
     Active Substance: OMEPRAZOLE
     Indication: PRODUCT USED FOR UNKNOWN INDICATION
     Dosage: UNK
     Dates: start: 20160331
  7. ALTIZIDE/SPIRONOLACTONE [Suspect]
     Active Substance: ALTHIAZIDE\SPIRONOLACTONE
     Indication: CARDIAC DISORDER
     Dosage: 1 DF, QD
  8. TANGANIL [Suspect]
     Active Substance: ACETYLLEUCINE
     Dosage: 2 DOSAGE FORM, QD
  9. SECTRAL [Concomitant]
     Active Substance: ACEBUTOLOL HYDROCHLORIDE
     Indication: CARDIAC DISORDER
     Dosage: 0.5 DF, 1/2 TABLET AT 08:00
     Route: 048
  10. JANUVIA [Concomitant]
     Active Substance: SITAGLIPTIN PHOSPHATE
     Indication: CARDIAC DISORDER
     Dosage: 1 DOSAGE FORM, QD
     Route: 065
  11. MEDROL [Concomitant]
     Active Substance: METHYLPREDNISOLONE
     Indication: IMMUNOSUPPRESSION
     Dosage: UNK
  12. FLUVASTATIN MYLAN [Suspect]
     Active Substance: FLUVASTATIN SODIUM
     Dosage: UNK
     Dates: start: 20160730
  13. RAMIPRIL. [Suspect]
     Active Substance: RAMIPRIL
     Indication: PRODUCT USED FOR UNKNOWN INDICATION
     Dosage: 1 DOSAGE FORM, QD
     Route: 048
     Dates: start: 20121105
  14. LERCANIDIPINE [Suspect]
     Active Substance: LERCANIDIPINE
     Indication: PRODUCT USED FOR UNKNOWN INDICATION
     Dosage: 1 DOSAGE FORM, QD
     Route: 065
     Dates: start: 20180527
  15. PARACETAMOL MYLAN [Suspect]
     Active Substance: ACETAMINOPHEN
     Indication: BACK PAIN
     Dosage: 3 DOSAGE FORM, QD
     Route: 065
     Dates: start: 20180816
  16. ALTIZIDE/SPIRONOLACTONE [Suspect]
     Active Substance: ALTHIAZIDE\SPIRONOLACTONE
     Indication: HYPERTENSION
     Dosage: UNK
     Dates: start: 20130301
  17. APRANAX                            /00256201/ [Suspect]
     Active Substance: NAPROXEN
     Indication: BACK PAIN
     Dosage: 1 DOSAGE FORM, QD
     Dates: start: 20160311
  18. FORTIMEL COMPACT PROTEIN [Concomitant]
     Indication: PROTEIN DEFICIENCY
     Dosage: 125 ML, QD
     Route: 048
  19. CELLCEPT [Concomitant]
     Active Substance: MYCOPHENOLATE MOFETIL\MYCOPHENOLATE MOFETIL HYDROCHLORIDE
     Indication: IMMUNOSUPPRESSION
     Dosage: 2 DF, BID (2 TABLETS AT 08:00, 20:00 (IE 1G MORNING AND EVENING)
  20. CHOLECALCIFEROL [Concomitant]
     Active Substance: CHOLECALCIFEROL
     Indication: PRODUCT USED FOR UNKNOWN INDICATION
     Dosage: UNK
  21. OFLOXACIN HYDROCHLORIDE [Concomitant]
     Active Substance: OFLOXACIN HYDROCHLORIDE
     Indication: URINARY TRACT INFECTION
     Dosage: UNK
     Route: 065
  22. ACEBUTOLOL [Suspect]
     Active Substance: ACEBUTOLOL
     Indication: PRODUCT USED FOR UNKNOWN INDICATION
     Dosage: UNK
     Dates: start: 20121105
  23. ACEBUTOLOL [Suspect]
     Active Substance: ACEBUTOLOL
     Dosage: 0.5 DF, QD (HALF TABLET ON MORNING)
     Route: 065
     Dates: start: 20180527
  24. APRANAX                            /00256201/ [Suspect]
     Active Substance: NAPROXEN
     Indication: NAUSEA
     Dosage: 1 DF, QD
     Route: 065
     Dates: start: 20160322
  25. SECTRAL [Concomitant]
     Active Substance: ACEBUTOLOL HYDROCHLORIDE
     Indication: HYPERTENSION
  26. RESIKALI [Concomitant]
     Active Substance: CALCIUM POLYSTYRENE SULFONATE
     Indication: GENERAL SYMPTOM
     Dosage: 1 SPOON IN THE MORNING AND IN THE EVENING, BID
  27. KARDEGIC [Concomitant]
     Active Substance: ASPIRIN DL-LYSINE
     Indication: CARDIAC DISORDER
     Dosage: 1 DF, QD
     Route: 065
  28. ATORVASTATIN MYLAN [Suspect]
     Active Substance: ATORVASTATIN
     Indication: PAIN IN EXTREMITY
     Dosage: 1 DF, QD,ON EVENING
     Route: 065
     Dates: start: 20160730
  29. FLUVASTATIN MYLAN [Suspect]
     Active Substance: FLUVASTATIN SODIUM
     Indication: PRODUCT USED FOR UNKNOWN INDICATION
     Dosage: 1 DF, QD
     Dates: start: 20110201, end: 20160517
  30. MELOXICAM. [Suspect]
     Active Substance: MELOXICAM
     Indication: PRODUCT USED FOR UNKNOWN INDICATION
     Dosage: UNK
     Dates: start: 20160301
  31. MELOXICAM. [Suspect]
     Active Substance: MELOXICAM
     Dosage: 1 DOSAGE FORM, QD
     Dates: start: 201603
  32. BACTRIM [Concomitant]
     Active Substance: SULFAMETHOXAZOLE\TRIMETHOPRIM
     Indication: INFECTION
     Dosage: 1 DF, MON WED FRI AT 08:00
     Route: 048
  33. ATORVASTATIN MYLAN [Suspect]
     Active Substance: ATORVASTATIN
     Dosage: 10 MG, QD
     Route: 065
     Dates: start: 20160301, end: 20160517
  34. APRANAX                            /00256201/ [Suspect]
     Active Substance: NAPROXEN
     Indication: FATIGUE
     Dosage: UNK
     Route: 065
     Dates: start: 20160730
  35. ANTALNOX [Suspect]
     Active Substance: NAPROXEN SODIUM
     Indication: PRODUCT USED FOR UNKNOWN INDICATION
     Dosage: UNK
     Dates: start: 20160311, end: 20160730
  36. ANTALNOX [Suspect]
     Active Substance: NAPROXEN SODIUM
     Dosage: UNK
     Route: 065
     Dates: start: 20160730
  37. NAPROXEN SODIUM. [Suspect]
     Active Substance: NAPROXEN SODIUM
     Indication: PRODUCT USED FOR UNKNOWN INDICATION
     Dosage: 1 DOSAGE FORM, QD
     Route: 065
  38. PROGRAF [Concomitant]
     Active Substance: TACROLIMUS\TACROLIMUS ANHYDROUS
     Indication: IMMUNOSUPPRESSION
     Dosage: UNK (AT 8)
  39. OFLOCET                            /00731801/ [Concomitant]
     Active Substance: OFLOXACIN
     Indication: URINARY TRACT INFECTION
     Dosage: UNK (5 DAYS)
  40. RAMIPRIL. [Suspect]
     Active Substance: RAMIPRIL
     Dosage: 1 DOSAGE FORM, QD
     Route: 048
     Dates: start: 20180527
  41. PARACETAMOL/TRAMADOL [Suspect]
     Active Substance: ACETAMINOPHEN\TRAMADOL
     Indication: BACK PAIN
     Dosage: 3 DF, TID
     Dates: start: 20110816
  42. ACEBUTOLOL [Suspect]
     Active Substance: ACEBUTOLOL
     Dosage: 0.5 DF, QD (HALF TABLET ON MORNING)
     Route: 065
  43. ALDACTAZINE [Suspect]
     Active Substance: ALTHIAZIDE\SPIRONOLACTONE
     Indication: HYPERTENSION
     Dosage: 1 DF, QD
     Route: 048
     Dates: start: 20180527
  44. TANGANIL [Suspect]
     Active Substance: ACETYLLEUCINE
     Indication: DIZZINESS
     Dosage: 2 DF, BID
  45. SECTRAL [Concomitant]
     Active Substance: ACEBUTOLOL HYDROCHLORIDE
     Indication: CARDIAC DISORDER
  46. LANSOPRAZOLE. [Concomitant]
     Active Substance: LANSOPRAZOLE
     Indication: GENERAL SYMPTOM
     Dosage: 30 MG, QD (30 MG AT 20:00)
     Route: 048
  47. CELLCEPT [Concomitant]
     Active Substance: MYCOPHENOLATE MOFETIL\MYCOPHENOLATE MOFETIL HYDROCHLORIDE
     Dosage: 2 DOSAGE FORM, QD
     Route: 065

REACTIONS (8)
  - Jaundice [Unknown]
  - Pain in extremity [None]
  - Sleep apnoea syndrome [Unknown]
  - Gastrointestinal disorder [Unknown]
  - Hepatitis [None]
  - Hepatic necrosis [Unknown]
  - Liver transplant [None]
  - Hepatitis acute [Unknown]

NARRATIVE: CASE EVENT DATE: 20160408
